FAERS Safety Report 16022641 (Version 1)
Quarter: 2019Q2

REPORT INFORMATION
  Report Type: Spontaneous
  Country: US (occurrence: US)
  Receive Date: 20190301
  Receipt Date: 20190301
  Transmission Date: 20190711
  Serious: Yes (Disabling)
  Sender: FDA-Public Use
  Company Number: None

PATIENT
  Age: 55 Year
  Sex: Female
  Weight: 73.8 kg

DRUGS (16)
  1. NEOSPORIN [Concomitant]
     Active Substance: BACITRACIN ZINC\NEOMYCIN SULFATE\POLYMYXIN B SULFATE
  2. VIT D [Concomitant]
     Active Substance: VITAMIN D NOS
  3. VITAMIN E [Concomitant]
     Active Substance: .ALPHA.-TOCOPHEROL
  4. PREBIOTIC [Concomitant]
  5. PROBIOTIC [Concomitant]
     Active Substance: PROBIOTICS NOS
  6. ESTRADIOL. [Concomitant]
     Active Substance: ESTRADIOL
  7. PRISTIQ EXTENDED-RELEASE [Concomitant]
     Active Substance: DESVENLAFAXINE SUCCINATE
  8. TRIAMCINOLONE [Concomitant]
     Active Substance: TRIAMCINOLONE
  9. LEVOTHYROXINE. [Concomitant]
     Active Substance: LEVOTHYROXINE
  10. STELARA [Suspect]
     Active Substance: USTEKINUMAB
     Indication: PSORIATIC ARTHROPATHY
     Dosage: ?          QUANTITY:0.5 ML;OTHER FREQUENCY:30 DAYS;?
     Route: 058
     Dates: start: 20181127, end: 20181227
  11. VISTARIL [Concomitant]
     Active Substance: HYDROXYZINE PAMOATE
  12. BENADRYL [Concomitant]
     Active Substance: DIPHENHYDRAMINE HYDROCHLORIDE
  13. CLOBETASOL [Concomitant]
     Active Substance: CLOBETASOL
  14. ALVEENO ANTI-ITCH CREAM [Concomitant]
  15. XANAX [Concomitant]
     Active Substance: ALPRAZOLAM
  16. VANIPLY [Concomitant]
     Active Substance: DIMETHICONE

REACTIONS (3)
  - Erythrodermic psoriasis [None]
  - Photosensitivity reaction [None]
  - Dermatitis exfoliative [None]

NARRATIVE: CASE EVENT DATE: 20181228
